FAERS Safety Report 7769247-0 (Version None)
Quarter: 2011Q3

REPORT INFORMATION
  Report Type: 
  Country: None (occurrence: None)
  Receive Date: 20110922
  Receipt Date: 20110917
  Transmission Date: 20111222
  Serious: Yes (Hospitalization)
  Sender: FDA-Public Use
  Company Number: IT-ROCHE-802468

PATIENT
  Sex: Female
  Weight: 63 kg

DRUGS (2)
  1. BEVACIZUMAB [Suspect]
     Indication: GLIOBLASTOMA
     Route: 042
     Dates: start: 20110223, end: 20110826
  2. IRINOTECAN HCL [Suspect]
     Indication: GLIOBLASTOMA
     Route: 042
     Dates: start: 20110223, end: 20110326

REACTIONS (1)
  - PANCREATITIS [None]
